FAERS Safety Report 15747822 (Version 2)
Quarter: 2019Q1

REPORT INFORMATION
  Report Type: Spontaneous
  Country: US (occurrence: US)
  Receive Date: 20181221
  Receipt Date: 20190207
  Transmission Date: 20190417
  Serious: Yes (Other)
  Sender: FDA-Public Use
  Company Number: US-JNJFOC-20181133948

PATIENT
  Sex: Male

DRUGS (2)
  1. IMBRUVICA [Suspect]
     Active Substance: IBRUTINIB
     Indication: PRODUCT USED FOR UNKNOWN INDICATION
     Route: 048
  2. AMLODIPINE [Suspect]
     Active Substance: AMLODIPINE BESYLATE
     Indication: PRODUCT USED FOR UNKNOWN INDICATION
     Route: 065

REACTIONS (9)
  - Post procedural contusion [Unknown]
  - Erythema [Unknown]
  - Fall [Unknown]
  - Post procedural haemorrhage [Unknown]
  - Limb injury [Unknown]
  - Hypotension [Unknown]
  - Off label use [Unknown]
  - Blood blister [Unknown]
  - Incorrect dose administered [Unknown]
